FAERS Safety Report 5922067-1 (Version None)
Quarter: 2008Q4

REPORT INFORMATION
  Report Type: 
  Country: None (occurrence: None)
  Receive Date: 20081017
  Receipt Date: 20081007
  Transmission Date: 20090506
  Serious: Yes (Hospitalization)
  Sender: FDA-Public Use
  Company Number: B0540523A

PATIENT
  Age: 79 Year
  Sex: Female

DRUGS (4)
  1. DEROXAT [Suspect]
     Indication: DEPRESSION
     Route: 065
     Dates: end: 20080911
  2. SOLIAN [Suspect]
     Indication: DEPRESSION
     Route: 065
  3. COAPROVEL [Suspect]
     Route: 065
  4. FRACTAL [Concomitant]
     Route: 065

REACTIONS (12)
  - BLOOD CREATININE INCREASED [None]
  - BRADYCARDIA [None]
  - DRUG TOXICITY [None]
  - HYPOKALAEMIA [None]
  - INTENTIONAL OVERDOSE [None]
  - LOSS OF CONSCIOUSNESS [None]
  - MALAISE [None]
  - RENAL FAILURE [None]
  - TORSADE DE POINTES [None]
  - VENTRICULAR ARRHYTHMIA [None]
  - VENTRICULAR EXTRASYSTOLES [None]
  - VENTRICULAR TACHYCARDIA [None]
